FAERS Safety Report 21918561 (Version 1)
Quarter: 2023Q1

REPORT INFORMATION
  Report Type: Spontaneous
  Country: BR (occurrence: BR)
  Receive Date: 20230127
  Receipt Date: 20230127
  Transmission Date: 20230417
  Serious: Yes (Hospitalization)
  Sender: FDA-Public Use
  Company Number: BR-UCBSA-2023004043

PATIENT
  Age: 76 Year
  Sex: Female
  Weight: 76 kg

DRUGS (1)
  1. KEPPRA [Suspect]
     Active Substance: LEVETIRACETAM
     Indication: Product used for unknown indication
     Dosage: 3 MILLILITER, 2X/DAY (BID)
     Route: 048

REACTIONS (3)
  - Infection [Recovered/Resolved]
  - Pulmonary congestion [Recovered/Resolved]
  - Hyponatraemia [Recovered/Resolved]

NARRATIVE: CASE EVENT DATE: 20220808
